FAERS Safety Report 9018064 (Version 1)
Quarter: 2013Q1

REPORT INFORMATION
  Report Type: Spontaneous
  Country: US (occurrence: None)
  Receive Date: 20130110
  Receipt Date: 20130110
  Transmission Date: 20140127
  Serious: Yes (Death)
  Sender: FDA-Public Use
  Company Number: None

PATIENT
  Age: 70 Year
  Sex: Male
  Weight: 119.71 kg

DRUGS (21)
  1. BORTEZOMIB [Suspect]
     Indication: ACUTE MYELOID LEUKAEMIA
     Dosage: D1, 4, 8, 11
     Dates: start: 20121221, end: 20121224
  2. DOXORUBICIN [Suspect]
     Indication: ACUTE MYELOID LEUKAEMIA
     Dosage: D4
     Route: 042
     Dates: start: 20121224
  3. ACYCOVIR [Concomitant]
  4. ALLOPURINOL [Concomitant]
  5. ASA [Concomitant]
  6. CEPHALEXIN [Concomitant]
  7. CIPROFLOXACIN [Concomitant]
  8. VITAMIN B12 [Concomitant]
  9. FLUTICASONE [Concomitant]
  10. HEPARIN [Concomitant]
  11. LATANOPROST OPTHAL SOLUTION [Concomitant]
  12. LISINIPRIL [Concomitant]
  13. LORATADINE [Concomitant]
  14. ONDANSETRON PRN [Concomitant]
  15. PREPARATIN H [Concomitant]
  16. POLYTHYLONOL CLYCOL [Concomitant]
  17. POSACONAZOLE [Concomitant]
  18. ACETAMINOPHEN PRN [Concomitant]
  19. HEPARIN FLUSH PRN [Concomitant]
  20. LORAZEPAM PRN [Concomitant]
  21. PROCHLORPERAZINE PRN [Concomitant]

REACTIONS (12)
  - Neutropenia [None]
  - Thrombocytopenia [None]
  - Pyrexia [None]
  - Pulmonary oedema [None]
  - Sinus tachycardia [None]
  - Syncope [None]
  - Orthostatic intolerance [None]
  - Blood count abnormal [None]
  - Hypoxia [None]
  - Respiratory distress [None]
  - Respiratory failure [None]
  - Infection [None]
